FAERS Safety Report 15494024 (Version 1)
Quarter: 2018Q4

REPORT INFORMATION
  Report Type: Spontaneous
  Country: US (occurrence: US)
  Receive Date: 20181005
  Receipt Date: 20181005
  Transmission Date: 20190205
  Serious: Yes (Disabling)
  Sender: FDA-Public Use
  Company Number: None

PATIENT
  Age: 78 Year
  Sex: Male
  Weight: 90 kg

DRUGS (15)
  1. AMLODOPINE [Concomitant]
     Active Substance: AMLODIPINE BESYLATE
  2. CURCUMIN [Concomitant]
     Active Substance: CURCUMIN
  3. SIMVISTATIN [Concomitant]
     Active Substance: SIMVASTATIN
  4. VITAMIN E [Concomitant]
     Active Substance: .ALPHA.-TOCOPHEROL
  5. HYDROCHLORATHIACIDE [Concomitant]
  6. OFEV [Suspect]
     Active Substance: NINTEDANIB
     Indication: IDIOPATHIC PULMONARY FIBROSIS
     Dosage: ?          QUANTITY:1 CAPSULE(S);?
     Route: 048
     Dates: start: 20180612
  7. LOSARTAN. [Concomitant]
     Active Substance: LOSARTAN
  8. LOPERAMIDE HCL [Concomitant]
     Active Substance: LOPERAMIDE HYDROCHLORIDE
  9. MSM [Concomitant]
     Active Substance: DIMETHYL SULFONE
  10. ZINC. [Concomitant]
     Active Substance: ZINC
  11. CLUCOSAMINE [Concomitant]
  12. PLAVIX [Concomitant]
     Active Substance: CLOPIDOGREL BISULFATE
  13. COQ10 [Concomitant]
     Active Substance: UBIDECARENONE
  14. VITAMIN B12 COMPLEX LIQUID [Concomitant]
  15. VITAMIN D3 [Concomitant]
     Active Substance: CHOLECALCIFEROL

REACTIONS (2)
  - Neuropathy peripheral [None]
  - Oedema peripheral [None]

NARRATIVE: CASE EVENT DATE: 20180715
